FAERS Safety Report 24779801 (Version 1)
Quarter: 2024Q4

REPORT INFORMATION
  Report Type: Report from Study
  Country: AU (occurrence: AU)
  Receive Date: 20241226
  Receipt Date: 20241226
  Transmission Date: 20250115
  Serious: Yes (Disabling, Other)
  Sender: ROCHE
  Company Number: AU-ROCHE-10000025954

PATIENT
  Age: 45 Year
  Sex: Female
  Weight: 76 kg

DRUGS (3)
  1. OCREVUS [Suspect]
     Active Substance: OCRELIZUMAB
     Indication: Multiple sclerosis
     Route: 042
     Dates: start: 20240620
  2. OCREVUS [Suspect]
     Active Substance: OCRELIZUMAB
     Route: 042
  3. GABAPENTIN [Concomitant]
     Active Substance: GABAPENTIN
     Dosage: 1 TAB ONCE
     Route: 048

REACTIONS (11)
  - Throat irritation [Recovered/Resolved]
  - Walking aid user [Recovering/Resolving]
  - Joint injury [Recovering/Resolving]
  - Hypoaesthesia [Recovering/Resolving]
  - Ear pruritus [Recovered/Resolved]
  - Paraesthesia [Recovering/Resolving]
  - Contusion [Unknown]
  - COVID-19 [Recovered/Resolved]
  - Muscle rupture [Unknown]
  - Liver function test abnormal [Unknown]
  - Insomnia [Unknown]

NARRATIVE: CASE EVENT DATE: 20240620
